FAERS Safety Report 7588625-6 (Version None)
Quarter: 2011Q3

REPORT INFORMATION
  Report Type: 
  Country: None (occurrence: None)
  Receive Date: 20110705
  Receipt Date: 20110630
  Transmission Date: 20111222
  Serious: Yes (Other)
  Sender: FDA-Public Use
  Company Number: US-BRISTOL-MYERS SQUIBB COMPANY-15870199

PATIENT
  Sex: Female

DRUGS (2)
  1. REYATAZ [Suspect]
     Dosage: 1DF:300UNITS NOS
  2. RITONAVIR [Suspect]
     Dosage: 1DF: 100UNITS NOS

REACTIONS (2)
  - HAEMODIALYSIS [None]
  - URINE OUTPUT INCREASED [None]
